FAERS Safety Report 13415837 (Version 1)
Quarter: 2017Q2

REPORT INFORMATION
  Report Type: Report from Study
  Country: US (occurrence: US)
  Receive Date: 20170407
  Receipt Date: 20170407
  Transmission Date: 20170830
  Serious: Yes (Hospitalization)
  Sender: FDA-Public Use
  Company Number: US-SA-2017SA057961

PATIENT
  Age: 32 Year
  Sex: Male

DRUGS (1)
  1. LEMTRADA [Suspect]
     Active Substance: ALEMTUZUMAB
     Indication: MULTIPLE SCLEROSIS
     Route: 041
     Dates: start: 20170330, end: 20170330

REACTIONS (10)
  - Blood pressure increased [Unknown]
  - Back pain [Unknown]
  - Oxygen saturation decreased [Unknown]
  - Seizure like phenomena [Unknown]
  - Chest pain [Unknown]
  - Incoherent [Unknown]
  - White blood cell count abnormal [Unknown]
  - Dyspnoea [Unknown]
  - Pyrexia [Unknown]
  - Hyperhidrosis [Unknown]

NARRATIVE: CASE EVENT DATE: 20170330
